FAERS Safety Report 6860783-8 (Version None)
Quarter: 2010Q3

REPORT INFORMATION
  Report Type: 
  Country: None (occurrence: None)
  Receive Date: 20100719
  Receipt Date: 20100719
  Transmission Date: 20110219
  Serious: Yes (Death, Life-Threatening, Hospitalization)
  Sender: FDA-Public Use
  Company Number: None

PATIENT
  Age: 68 Year
  Sex: Female
  Weight: 73.4827 kg

DRUGS (15)
  1. SUNITINIB -SUTENT- 50 MG PFIZER [Suspect]
     Indication: RENAL CELL CARCINOMA
     Dosage: 50 MG DAILY PO
     Route: 048
     Dates: start: 20091113, end: 20091122
  2. SUNITINIB -SUTENT- 25 MG PFIZER [Suspect]
     Indication: RENAL CELL CARCINOMA
     Dosage: 25 MG DAILY PO
     Route: 048
     Dates: start: 20100116, end: 20100701
  3. POTASSIUM CHLORIDE [Concomitant]
  4. MAGNESIUM OXIDE [Concomitant]
  5. VERAPAMIL [Concomitant]
  6. OXYCONTIN [Concomitant]
  7. MULTI-VITAMIN [Concomitant]
  8. TOPROL-XL [Concomitant]
  9. ATIVAN [Concomitant]
  10. SYNTHROID [Concomitant]
  11. IMDUR [Concomitant]
  12. CELEXA [Concomitant]
  13. WELLBUTRIN [Concomitant]
  14. ASPIRIN [Concomitant]
  15. HYDROCODONE BITARTRATE [Concomitant]

REACTIONS (16)
  - ABDOMINAL ADHESIONS [None]
  - DECREASED APPETITE [None]
  - DISSEMINATED INTRAVASCULAR COAGULATION [None]
  - ENCEPHALOPATHY [None]
  - FAILURE TO THRIVE [None]
  - INTESTINAL ISCHAEMIA [None]
  - LARGE INTESTINE PERFORATION [None]
  - MEGACOLON [None]
  - MENTAL STATUS CHANGES [None]
  - METABOLIC ACIDOSIS [None]
  - NEUTROPENIA [None]
  - PANCYTOPENIA [None]
  - PERITONITIS [None]
  - RENAL FAILURE ACUTE [None]
  - SEPSIS [None]
  - WEIGHT DECREASED [None]
